FAERS Safety Report 5643079-1 (Version None)
Quarter: 2008Q1

REPORT INFORMATION
  Report Type: 
  Country: None (occurrence: None)
  Receive Date: 20080227
  Receipt Date: 20080227
  Transmission Date: 20080703
  Serious: No
  Sender: FDA-Public Use
  Company Number: None

PATIENT
  Age: 71 Year
  Sex: Male
  Weight: 96.52 kg

DRUGS (1)
  1. CIPROFLOXACIN [Suspect]
     Indication: KLEBSIELLA SEPSIS
     Dosage: 500MG EVERY DAY PO
     Route: 048
     Dates: start: 20070608, end: 20070612

REACTIONS (4)
  - ANAPHYLACTIC REACTION [None]
  - PHARYNGEAL ERYTHEMA [None]
  - RASH [None]
  - SWELLING [None]
